FAERS Safety Report 23523773 (Version 2)
Quarter: 2024Q1

REPORT INFORMATION
  Report Type: Spontaneous
  Country: JP (occurrence: JP)
  Receive Date: 20240214
  Receipt Date: 20240313
  Transmission Date: 20240409
  Serious: Yes (Hospitalization)
  Sender: FDA-Public Use
  Company Number: JP-Eisai-202313755_LEN-EC_P_1

PATIENT
  Sex: Female

DRUGS (3)
  1. LENVIMA [Suspect]
     Active Substance: LENVATINIB
     Indication: Endometrial cancer
     Dosage: UNKNOWN DOSE AND FREQUENCY
     Route: 048
  2. KEYTRUDA [Concomitant]
     Active Substance: PEMBROLIZUMAB
     Indication: Endometrial cancer
     Route: 041
  3. KEYTRUDA [Concomitant]
     Active Substance: PEMBROLIZUMAB
     Route: 041

REACTIONS (3)
  - Pyrexia [Recovering/Resolving]
  - Renal impairment [Recovering/Resolving]
  - Septic shock [Recovering/Resolving]
